FAERS Safety Report 8607479-X (Version None)
Quarter: 2012Q3

REPORT INFORMATION
  Report Type: 
  Country: None (occurrence: None)
  Receive Date: 20120821
  Receipt Date: 20120810
  Transmission Date: 20120928
  Serious: Yes (Disabling)
  Sender: FDA-Public Use
  Company Number: NO-JNJFOC-20120806794

PATIENT
  Sex: Female

DRUGS (5)
  1. IBUPROFEN [Concomitant]
     Indication: JUVENILE ARTHRITIS
     Dates: start: 20060101
  2. FOLSYRE NAF [Concomitant]
     Route: 065
  3. METHOTREXATE [Concomitant]
     Indication: JUVENILE ARTHRITIS
     Route: 065
     Dates: start: 20060101
  4. REMICADE [Suspect]
     Indication: JUVENILE ARTHRITIS
     Route: 042
     Dates: start: 20071201
  5. ZOFRAN [Concomitant]
     Route: 065
     Dates: start: 20120101

REACTIONS (2)
  - ARTHRALGIA [None]
  - INITIAL INSOMNIA [None]
